FAERS Safety Report 24303609 (Version 3)
Quarter: 2024Q3

REPORT INFORMATION
  Report Type: Report from Study
  Country: ES (occurrence: ES)
  Receive Date: 20240910
  Receipt Date: 20240917
  Transmission Date: 20241017
  Serious: Yes (Hospitalization)
  Sender: BIOVITRUM
  Company Number: ES-BIOVITRUM-2024-ES-011800

PATIENT
  Age: 49 Year
  Sex: Male

DRUGS (6)
  1. AVATROMBOPAG [Suspect]
     Active Substance: AVATROMBOPAG
     Indication: Immune thrombocytopenia
     Dosage: 1 TABLET DAILY
     Dates: start: 20230203
  2. AVATROMBOPAG [Suspect]
     Active Substance: AVATROMBOPAG
     Dosage: X3/WEEK
  3. AVATROMBOPAG [Suspect]
     Active Substance: AVATROMBOPAG
     Dosage: 2 DAYS A WEEK
  4. AVATROMBOPAG [Suspect]
     Active Substance: AVATROMBOPAG
     Dosage: PER WEEK
     Dates: start: 20240530
  5. ASPIRIN [Concomitant]
     Active Substance: ASPIRIN
     Indication: Product used for unknown indication
     Dosage: PER DAY
  6. ATORVASTATIN [Concomitant]
     Active Substance: ATORVASTATIN
     Indication: Product used for unknown indication
     Dosage: PER DAY

REACTIONS (1)
  - Ischaemic stroke [Recovered/Resolved]

NARRATIVE: CASE EVENT DATE: 20240408
